FAERS Safety Report 7276174-4 (Version None)
Quarter: 2011Q1

REPORT INFORMATION
  Report Type: 
  Country: None (occurrence: None)
  Receive Date: 20110204
  Receipt Date: 20110128
  Transmission Date: 20110831
  Serious: Yes (Death, Disabling)
  Sender: FDA-Public Use
  Company Number: US-CELGENEUS-163-20785-10113216

PATIENT
  Sex: Female

DRUGS (4)
  1. THALOMID [Suspect]
     Indication: MULTIPLE MYELOMA
     Route: 048
     Dates: start: 20100702, end: 20100925
  2. MELPHALAN [Concomitant]
     Indication: MULTIPLE MYELOMA
     Route: 048
     Dates: start: 20100706
  3. COUMADIN [Concomitant]
     Route: 048
     Dates: end: 20100701
  4. PREDNISONE [Concomitant]
     Indication: MULTIPLE MYELOMA
     Route: 048
     Dates: start: 20100706

REACTIONS (3)
  - DEATH [None]
  - FATIGUE [None]
  - PERFORMANCE STATUS DECREASED [None]
